FAERS Safety Report 7213176-8 (Version None)
Quarter: 2011Q1

REPORT INFORMATION
  Report Type: 
  Country: None (occurrence: None)
  Receive Date: 20110106
  Receipt Date: 20101227
  Transmission Date: 20110831
  Serious: Yes (Hospitalization)
  Sender: FDA-Public Use
  Company Number: US-CELGENEUS-163-21880-10123194

PATIENT
  Sex: Female

DRUGS (3)
  1. REVLIMID [Suspect]
     Route: 048
     Dates: start: 20090218
  2. REVLIMID [Suspect]
     Route: 048
     Dates: start: 20100501
  3. REVLIMID [Suspect]
     Route: 048
     Dates: start: 20100101

REACTIONS (1)
  - FLUID RETENTION [None]
